FAERS Safety Report 11893906 (Version 1)
Quarter: 2016Q1

REPORT INFORMATION
  Report Type: Spontaneous
  Country: GB (occurrence: GB)
  Receive Date: 20160107
  Receipt Date: 20160107
  Transmission Date: 20160526
  Serious: Yes (Other)
  Sender: FDA-Public Use
  Company Number: GB-AMGEN-GBRSP2015137679

PATIENT
  Age: 68 Year
  Sex: Male

DRUGS (4)
  1. PROLIA [Suspect]
     Active Substance: DENOSUMAB
     Indication: PRODUCT USED FOR UNKNOWN INDICATION
     Dosage: UNK
     Route: 065
  2. AVASTIN [Concomitant]
     Active Substance: BEVACIZUMAB
     Route: 065
  3. PEMETREXED [Concomitant]
     Active Substance: PEMETREXED
     Route: 065
  4. CARBOPLATIN. [Concomitant]
     Active Substance: CARBOPLATIN
     Route: 065

REACTIONS (12)
  - Abdominal tenderness [Unknown]
  - Protein urine present [Unknown]
  - Abdominal distension [Not Recovered/Not Resolved]
  - Urinary tract infection [Unknown]
  - Hyponatraemia [Unknown]
  - Anaemia [Unknown]
  - Musculoskeletal chest pain [Unknown]
  - Abdominal discomfort [Not Recovered/Not Resolved]
  - Constipation [Not Recovered/Not Resolved]
  - Blood urine present [Unknown]
  - C-reactive protein increased [Unknown]
  - Contusion [Unknown]

NARRATIVE: CASE EVENT DATE: 201512
